FAERS Safety Report 8439080-5 (Version None)
Quarter: 2012Q2

REPORT INFORMATION
  Report Type: 
  Country: None (occurrence: None)
  Receive Date: 20120615
  Receipt Date: 20120608
  Transmission Date: 20120825
  Serious: Yes (Hospitalization)
  Sender: FDA-Public Use
  Company Number: JP-JNJFOC-20120400754

PATIENT
  Sex: Female
  Weight: 35 kg

DRUGS (16)
  1. GALANTAMINE HYDROBROMIDE [Suspect]
     Indication: DEMENTIA ALZHEIMER'S TYPE
     Route: 048
     Dates: start: 20120102, end: 20120413
  2. GALANTAMINE HYDROBROMIDE [Suspect]
     Route: 048
     Dates: start: 20111205, end: 20120102
  3. LANSOPRAZOLE [Concomitant]
     Indication: GASTRIC ULCER
     Route: 048
     Dates: start: 20120326
  4. ADONA [Concomitant]
     Indication: GASTRIC ULCER
     Route: 042
     Dates: start: 20120331, end: 20120331
  5. TOKICLOR [Concomitant]
     Indication: ECZEMA
     Route: 048
     Dates: start: 20111214, end: 20111217
  6. BUSCOPAN [Concomitant]
     Indication: GASTRIC ULCER
     Route: 042
     Dates: start: 20120331, end: 20120331
  7. FAMOTIDINE [Concomitant]
     Indication: GASTRIC ULCER
     Route: 042
     Dates: start: 20120331, end: 20120331
  8. GALANTAMINE HYDROBROMIDE [Suspect]
     Route: 048
     Dates: start: 20111107, end: 20111205
  9. ALPRAZOLAM [Concomitant]
     Indication: INSOMNIA
     Route: 048
  10. INFLUENZA HA VACCINE [Concomitant]
     Indication: PROPHYLAXIS
     Route: 058
     Dates: start: 20111209, end: 20111209
  11. SILECE [Concomitant]
     Indication: GASTRIC ULCER
     Route: 042
     Dates: start: 20120331, end: 20120331
  12. AMLODIPINE BESYLATE [Concomitant]
     Indication: HYPERTENSION
     Route: 048
  13. ZOLPIDEM [Concomitant]
     Indication: INSOMNIA
     Route: 048
     Dates: start: 20111209
  14. ALLOID G [Concomitant]
     Indication: GASTRIC ULCER
     Route: 048
     Dates: start: 20120401
  15. UNKNOWN MEDICATION [Concomitant]
     Indication: GASTRIC ULCER
     Route: 041
     Dates: start: 20120331, end: 20120331
  16. TRANSAMINE CAP [Concomitant]
     Indication: GASTRIC ULCER
     Route: 042
     Dates: start: 20120331, end: 20120331

REACTIONS (1)
  - GASTRIC ULCER HAEMORRHAGE [None]
